FAERS Safety Report 8052548-9 (Version None)
Quarter: 2012Q1

REPORT INFORMATION
  Report Type: 
  Country: None (occurrence: None)
  Receive Date: 20120111
  Receipt Date: 20110721
  Transmission Date: 20120608
  Serious: Yes (Other)
  Sender: FDA-Public Use
  Company Number: E2011-03737

PATIENT
  Age: 33 Year
  Sex: Female

DRUGS (1)
  1. TUBERTEST (TUBERCULIN PPD(M) 5 TU), SANOFI PASTEUR LTD. LOT NOT REP, N [Suspect]
     Indication: TUBERCULIN TEST
     Route: 023
     Dates: start: 20110530, end: 20110530

REACTIONS (6)
  - VACCINATION SITE INDURATION [None]
  - INCORRECT DOSE ADMINISTERED [None]
  - VACCINATION SITE PAIN [None]
  - OVERDOSE [None]
  - MEDICATION ERROR [None]
  - LYMPHADENOPATHY [None]
